FAERS Safety Report 7551156-3 (Version None)
Quarter: 2011Q2

REPORT INFORMATION
  Report Type: 
  Country: None (occurrence: None)
  Receive Date: 20110609
  Receipt Date: 20110524
  Transmission Date: 20111010
  Serious: Yes (Other)
  Sender: FDA-Public Use
  Company Number: 2011MA006473

PATIENT
  Age: 26 Year
  Sex: Male

DRUGS (1)
  1. IBUPROFEN [Suspect]
     Indication: BACK PAIN

REACTIONS (12)
  - GASTRIC DILATATION [None]
  - IRON DEFICIENCY ANAEMIA [None]
  - HYPOVOLAEMIA [None]
  - DUODENAL STENOSIS [None]
  - FOOD INTOLERANCE [None]
  - MALNUTRITION [None]
  - DEHYDRATION [None]
  - INTESTINAL DILATATION [None]
  - NAUSEA [None]
  - DUODENAL ULCER [None]
  - VOMITING [None]
  - WEIGHT DECREASED [None]
